FAERS Safety Report 22608161 (Version 1)
Quarter: 2023Q2

REPORT INFORMATION
  Report Type: Other
  Country: US (occurrence: US)
  Receive Date: 20230616
  Receipt Date: 20230616
  Transmission Date: 20230722
  Serious: No
  Sender: FDA-Public Use
  Company Number: US-ALVOGEN-2023091410

PATIENT
  Age: 29 Year
  Sex: Male

DRUGS (7)
  1. LORAZEPAM [Suspect]
     Active Substance: LORAZEPAM
     Indication: Dystonia
  2. BUPROPION [Suspect]
     Active Substance: BUPROPION
     Indication: Mood swings
  3. BUPROPION [Suspect]
     Active Substance: BUPROPION
     Indication: Mood swings
  4. DIAZEPAM [Concomitant]
     Active Substance: DIAZEPAM
     Indication: Dystonia
  5. BENZTROPINE [Concomitant]
     Active Substance: BENZTROPINE
     Indication: Dystonia
  6. QUETIAPINE [Concomitant]
     Active Substance: QUETIAPINE
     Indication: Product used for unknown indication
  7. BUSPIRONE [Concomitant]
     Active Substance: BUSPIRONE HYDROCHLORIDE
     Indication: Product used for unknown indication

REACTIONS (1)
  - Off label use [Unknown]
